FAERS Safety Report 8322695-2 (Version None)
Quarter: 2012Q2

REPORT INFORMATION
  Report Type: 
  Country: None (occurrence: None)
  Receive Date: 20120430
  Receipt Date: 20120420
  Transmission Date: 20120825
  Serious: Yes (Other)
  Sender: FDA-Public Use
  Company Number: ZA-ASTRAZENECA-2012SE26221

PATIENT
  Age: 55 Year
  Sex: Female

DRUGS (1)
  1. ESOMEPRAZOLE SODIUM [Suspect]
     Route: 042

REACTIONS (1)
  - LOSS OF CONSCIOUSNESS [None]
